FAERS Safety Report 6116411-2 (Version None)
Quarter: 2009Q1

REPORT INFORMATION
  Report Type: 
  Country: None (occurrence: None)
  Receive Date: 20090314
  Receipt Date: 20081209
  Transmission Date: 20090719
  Serious: Yes (Other)
  Sender: FDA-Public Use
  Company Number: US-ABBOTT-08P-163-0492114-00

PATIENT
  Sex: Female
  Weight: 63.56 kg

DRUGS (2)
  1. HUMIRA [Suspect]
     Indication: CROHN'S DISEASE
     Dates: start: 20081107, end: 20081107
  2. HUMIRA [Suspect]
     Dates: start: 20081121, end: 20081121

REACTIONS (3)
  - CLOSTRIDIAL INFECTION [None]
  - CROHN'S DISEASE [None]
  - GASTROINTESTINAL INFECTION [None]
